FAERS Safety Report 9698730 (Version 1)
Quarter: 2013Q4

REPORT INFORMATION
  Report Type: Spontaneous
  Country: BE (occurrence: BE)
  Receive Date: 20131120
  Receipt Date: 20131120
  Transmission Date: 20140711
  Serious: Yes (Other)
  Sender: FDA-Public Use
  Company Number: BE-SPECTRUM PHARMACEUTICALS, INC.-13-F-BE-00295

PATIENT
  Sex: 0

DRUGS (6)
  1. FLUOROURACIL [Suspect]
     Indication: COLORECTAL CANCER METASTATIC
     Dosage: UNK UNK, UNK
     Route: 042
  2. FOLINIC ACID [Suspect]
     Indication: COLORECTAL CANCER METASTATIC
     Dosage: UNK UNK, UNK
     Route: 042
  3. OXALIPLATIN [Suspect]
     Indication: COLORECTAL CANCER METASTATIC
     Dosage: UNK, UNK, UNK
     Route: 042
  4. IRINOTECAN [Suspect]
     Indication: COLORECTAL CANCER METASTATIC
     Dosage: UNK UNK, UNK
     Route: 042
  5. BEVACIZUMAB [Suspect]
     Indication: COLORECTAL CANCER METASTATIC
     Dosage: UNK UNK, UNK
     Route: 042
  6. CETUXIMAB [Suspect]
     Indication: COLORECTAL CANCER METASTATIC
     Dosage: UNK UNK, UNK
     Route: 042

REACTIONS (5)
  - Venoocclusive liver disease [Unknown]
  - Nodular regenerative hyperplasia [Unknown]
  - Venoocclusive liver disease [Unknown]
  - Venoocclusive liver disease [Unknown]
  - Splenomegaly [Unknown]
